FAERS Safety Report 7955681-2 (Version None)
Quarter: 2011Q4

REPORT INFORMATION
  Report Type: 
  Country: None (occurrence: None)
  Receive Date: 20111204
  Receipt Date: 20111102
  Transmission Date: 20120403
  Serious: No
  Sender: FDA-Public Use
  Company Number: US-ALLERGAN-1114447US

PATIENT
  Age: 41 Year
  Sex: Female
  Weight: 58.05 kg

DRUGS (1)
  1. ACZONE [Suspect]
     Indication: ACNE
     Dosage: UNK
     Route: 061
     Dates: start: 20080101

REACTIONS (2)
  - THERAPEUTIC RESPONSE DECREASED [None]
  - SEBORRHOEA [None]
